FAERS Safety Report 9202241 (Version 3)
Quarter: 2013Q3

REPORT INFORMATION
  Report Type: Report from Study
  Country: JP (occurrence: JP)
  Receive Date: 20130401
  Receipt Date: 20130711
  Transmission Date: 20140515
  Serious: Yes (Other)
  Sender: FDA-Public Use
  Company Number: JP-CELGENEUS-087-21880-11072782

PATIENT
  Age: 55 Year
  Sex: Female

DRUGS (37)
  1. REVLIMID [Suspect]
     Indication: PLASMA CELL MYELOMA
     Dosage: 10 MILLIGRAM
     Route: 048
     Dates: start: 20110324, end: 20110413
  2. REVLIMID [Suspect]
     Dosage: 10 MILLIGRAM
     Route: 048
     Dates: start: 20110421, end: 20110511
  3. REVLIMID [Suspect]
     Dosage: 10 MILLIGRAM
     Route: 048
     Dates: start: 20110519, end: 20110608
  4. REVLIMID [Suspect]
     Dosage: 10 MILLIGRAM
     Route: 048
     Dates: start: 20110627, end: 20110717
  5. REVLIMID [Suspect]
     Dosage: 10 MILLIGRAM
     Route: 048
     Dates: start: 20110725, end: 20110814
  6. REVLIMID [Suspect]
     Dosage: 10 MILLIGRAM
     Route: 048
     Dates: start: 20110822, end: 20110911
  7. REVLIMID [Suspect]
     Dosage: 10 MILLIGRAM
     Route: 048
     Dates: start: 20110921, end: 20111011
  8. REVLIMID [Suspect]
     Dosage: 10 MILLIGRAM
     Route: 048
     Dates: start: 20111102, end: 20111122
  9. REVLIMID [Suspect]
     Dosage: 10 MILLIGRAM
     Route: 048
     Dates: start: 20111130, end: 20111220
  10. REVLIMID [Suspect]
     Dosage: 10 MILLIGRAM
     Route: 048
     Dates: start: 20111228, end: 20120117
  11. REVLIMID [Suspect]
     Dosage: 10 MILLIGRAM
     Route: 048
     Dates: start: 20120125, end: 20120214
  12. REVLIMID [Suspect]
     Dosage: 10 MILLIGRAM
     Route: 048
     Dates: start: 20120222, end: 20120313
  13. REVLIMID [Suspect]
     Dosage: 10 MILLIGRAM
     Route: 048
     Dates: start: 20120321, end: 20120410
  14. REVLIMID [Suspect]
     Dosage: 10 MILLIGRAM
     Route: 048
     Dates: start: 20120418, end: 20120508
  15. REVLIMID [Suspect]
     Dosage: 10 MILLIGRAM
     Route: 048
     Dates: start: 20120516, end: 20120605
  16. REVLIMID [Suspect]
     Dosage: 10 MILLIGRAM
     Route: 048
     Dates: start: 20120711, end: 20120731
  17. REVLIMID [Suspect]
     Dosage: 10 MILLIGRAM
     Route: 048
     Dates: start: 20120807, end: 20120827
  18. REVLIMID [Suspect]
     Dosage: 10 MILLIGRAM
     Route: 048
     Dates: start: 20120904, end: 20120924
  19. LENADEX [Suspect]
     Indication: PLASMA CELL MYELOMA
     Dosage: 40 MILLIGRAM
     Route: 048
     Dates: start: 20110324, end: 20110414
  20. LENADEX [Suspect]
     Dosage: 20 MILLIGRAM
     Route: 048
     Dates: start: 20110421, end: 20110512
  21. LENADEX [Suspect]
     Dosage: 20 MILLIGRAM
     Route: 048
     Dates: start: 20110519, end: 20110609
  22. LENADEX [Suspect]
     Dosage: 20 MILLIGRAM
     Route: 048
     Dates: start: 20110627, end: 20110718
  23. LENADEX [Suspect]
     Dosage: 20 MILLIGRAM
     Route: 048
     Dates: start: 20110725, end: 20110815
  24. LENADEX [Suspect]
     Dosage: 20 MILLIGRAM
     Route: 048
     Dates: start: 20110822, end: 20110912
  25. LENADEX [Suspect]
     Dosage: 20 MILLIGRAM
     Route: 048
     Dates: start: 20110921, end: 20111012
  26. LENADEX [Suspect]
     Dosage: 20 MILLIGRAM
     Route: 048
     Dates: start: 20111102, end: 20120314
  27. LENADEX [Suspect]
     Dosage: 20 MILLIGRAM
     Route: 048
     Dates: start: 20120321, end: 20120411
  28. LENADEX [Suspect]
     Dosage: 20 MILLIGRAM
     Route: 048
     Dates: start: 20120418, end: 20120509
  29. LENADEX [Suspect]
     Dosage: 20 MILLIGRAM
     Route: 048
     Dates: start: 20120516, end: 20120606
  30. LENADEX [Suspect]
     Dosage: 20 MILLIGRAM
     Route: 048
     Dates: start: 20120711, end: 20120801
  31. LENADEX [Suspect]
     Dosage: 20 MILLIGRAM
     Route: 048
     Dates: start: 20120807, end: 20120828
  32. LENADEX [Suspect]
     Dosage: 20 MILLIGRAM
     Route: 048
     Dates: start: 20120904, end: 20120925
  33. PERSANTIN-L [Suspect]
     Indication: PROTEIN URINE
     Dosage: 300 MILLIGRAM
     Route: 048
     Dates: start: 20091126
  34. TAKEPRON [Concomitant]
     Indication: PRODUCT USED FOR UNKNOWN INDICATION
     Dosage: 15 MILLIGRAM
     Route: 048
     Dates: start: 20090219, end: 20130306
  35. LIPITOR [Concomitant]
     Indication: PRODUCT USED FOR UNKNOWN INDICATION
     Dosage: 10 MILLIGRAM
     Route: 048
     Dates: start: 20090219
  36. BAYASPIRIN [Concomitant]
     Indication: PROPHYLAXIS
     Dosage: 100 MILLIGRAM
     Route: 048
     Dates: start: 20110331, end: 20121107
  37. BAKTAR [Concomitant]
     Indication: PROPHYLAXIS
     Dosage: 1 TABLET
     Route: 048
     Dates: start: 20110401, end: 20121105

REACTIONS (7)
  - Supraventricular tachycardia [Recovered/Resolved]
  - Upper respiratory tract inflammation [Recovered/Resolved]
  - Renal disorder [Recovered/Resolved]
  - Neutropenia [Recovered/Resolved]
  - Upper respiratory tract inflammation [Recovered/Resolved]
  - Neutropenia [Recovered/Resolved]
  - Headache [Recovered/Resolved]
